FAERS Safety Report 8483184-8 (Version None)
Quarter: 2012Q3

REPORT INFORMATION
  Report Type: 
  Country: None (occurrence: None)
  Receive Date: 20120702
  Receipt Date: 20120626
  Transmission Date: 20120928
  Serious: Yes (Other)
  Sender: FDA-Public Use
  Company Number: PHEH2012US000872

PATIENT
  Sex: Female
  Weight: 134 kg

DRUGS (4)
  1. NASONEX [Concomitant]
     Dosage: 50 UG, UNK
  2. GILENYA [Suspect]
     Indication: MULTIPLE SCLEROSIS
     Dosage: 0.5 MG, QD
     Route: 048
     Dates: start: 20111229
  3. TRAZODONE HCL [Suspect]
  4. SIMVASTATIN [Concomitant]
     Dosage: 10 MG, UNK

REACTIONS (12)
  - NASAL CONGESTION [None]
  - INSOMNIA [None]
  - DEPRESSION [None]
  - MOOD ALTERED [None]
  - PALPITATIONS [None]
  - VISUAL IMPAIRMENT [None]
  - LOCAL SWELLING [None]
  - HALLUCINATION [None]
  - CHILLS [None]
  - LIVER FUNCTION TEST ABNORMAL [None]
  - PAIN IN EXTREMITY [None]
  - VIRAL INFECTION [None]
